FAERS Safety Report 4269975-8 (Version None)
Quarter: 2004Q1

REPORT INFORMATION
  Report Type: 
  Country: None (occurrence: None)
  Receive Date: 20040112
  Receipt Date: 20031230
  Transmission Date: 20041129
  Serious: Yes (Hospitalization)
  Sender: FDA-Public Use
  Company Number: US-JNJFOC-20040100324

PATIENT
  Age: 72 Year
  Sex: Female
  Weight: 65.7716 kg

DRUGS (8)
  1. INFLIXIMAB  (INFLIXIMAB, RECOMBINANT) LYOPHILIZED POWDER [Suspect]
     Indication: RHEUMATOID ARTHRITIS
     Dosage: INTRAVENOUS
     Route: 042
     Dates: start: 20020919
  2. LIPITOR [Concomitant]
  3. METFORMIN HCL [Concomitant]
  4. TOPROL (METOPROLOL SUCCINATE) [Concomitant]
  5. FOLIC ACID [Concomitant]
  6. AMARYL [Concomitant]
  7. METHOTREXATE [Concomitant]
  8. ASPIRIN [Concomitant]

REACTIONS (2)
  - CHRONIC OBSTRUCTIVE AIRWAYS DISEASE EXACERBATED [None]
  - HAEMOGLOBIN DECREASED [None]
